FAERS Safety Report 15488800 (Version 3)
Quarter: 2023Q4

REPORT INFORMATION
  Report Type: Spontaneous
  Country: AT (occurrence: AT)
  Receive Date: 20181011
  Receipt Date: 20231130
  Transmission Date: 20240109
  Serious: Yes (Congenital Anomaly, Other)
  Sender: FDA-Public Use
  Company Number: AT-BRISTOL-MYERS SQUIBB COMPANY-BMS-2018-095224

PATIENT
  Age: 1 Day

DRUGS (13)
  1. EFAVIRENZ [Suspect]
     Active Substance: EFAVIRENZ
     Indication: Product used for unknown indication
     Dosage: 3RD THERAPY, 4TH THERAPY
     Route: 064
  2. DIDANOSINE [Suspect]
     Active Substance: DIDANOSINE
     Indication: Product used for unknown indication
     Route: 064
  3. STAVUDINE [Suspect]
     Active Substance: STAVUDINE
     Indication: Product used for unknown indication
     Dosage: 2ND THERAPY,3 RD THERAPY
     Route: 064
  4. INDINAVIR\RITONAVIR [Suspect]
     Active Substance: INDINAVIR\RITONAVIR
     Indication: Product used for unknown indication
     Route: 064
  5. ENFUVIRTIDE [Suspect]
     Active Substance: ENFUVIRTIDE
     Indication: Product used for unknown indication
     Route: 064
  6. ISENTRESS [Suspect]
     Active Substance: RALTEGRAVIR POTASSIUM
     Indication: Product used for unknown indication
     Dosage: UNK
     Route: 064
  7. LAMIVUDINE [Suspect]
     Active Substance: LAMIVUDINE
     Indication: Product used for unknown indication
     Dosage: 1ST THERAPY 2 ND THERAPY, 4TH THERAPY, 5TH THERAPY
     Route: 064
  8. ZIDOVUDINE [Suspect]
     Active Substance: ZIDOVUDINE
     Indication: Product used for unknown indication
     Dosage: 4TH, 5TH THERAPY
     Route: 064
  9. ZIDOVUDINE [Suspect]
     Active Substance: ZIDOVUDINE
     Route: 064
  10. LOPINAVIR\RITONAVIR [Suspect]
     Active Substance: LOPINAVIR\RITONAVIR
     Indication: Product used for unknown indication
     Route: 064
  11. LAMIVUDINE\ZIDOVUDINE [Suspect]
     Active Substance: LAMIVUDINE\ZIDOVUDINE
     Indication: Product used for unknown indication
     Route: 064
  12. PENICILLIN V POTASSIUM [Concomitant]
     Active Substance: PENICILLIN V POTASSIUM
     Indication: Product used for unknown indication
     Route: 064
  13. PREZISTA [Concomitant]
     Active Substance: DARUNAVIR ETHANOLATE
     Indication: Product used for unknown indication
     Route: 064

REACTIONS (2)
  - Plagiocephaly [Unknown]
  - Foetal exposure during pregnancy [Unknown]
